FAERS Safety Report 7049185-1 (Version None)
Quarter: 2010Q4

REPORT INFORMATION
  Report Type: 
  Country: None (occurrence: None)
  Receive Date: 20101018
  Receipt Date: 20101004
  Transmission Date: 20110411
  Serious: Yes (Other)
  Sender: FDA-Public Use
  Company Number: GB-RANBAXY-2010R1-38782

PATIENT

DRUGS (2)
  1. FLUCONAZOLE [Suspect]
     Indication: FUNGAL SKIN INFECTION
     Dosage: 150 MG, UNK
     Route: 048
     Dates: start: 20100915, end: 20100915
  2. SULFASALAZINE [Concomitant]
     Indication: RHEUMATOID ARTHRITIS
     Dosage: 1 G, TID
     Route: 048
     Dates: start: 20030519

REACTIONS (2)
  - HYPERSENSITIVITY [None]
  - SWELLING FACE [None]
